FAERS Safety Report 18628601 (Version 1)
Quarter: 2020Q4

REPORT INFORMATION
  Report Type: Spontaneous
  Country: ES (occurrence: ES)
  Receive Date: 20201217
  Receipt Date: 20201217
  Transmission Date: 20210114
  Serious: Yes (Life-Threatening, Hospitalization)
  Sender: FDA-Public Use
  Company Number: ES-TEVA-2020-ES-1858353

PATIENT
  Sex: Male

DRUGS (2)
  1. CIPROFLOXACINO (2049A) [Suspect]
     Active Substance: CIPROFLOXACIN
     Dates: start: 202008, end: 2020
  2. CLIPPER 5 MG COMPRIMIDOS GASTRORRESISTENTES DE LIBERACION PROLONGADA, [Concomitant]
     Dates: start: 202008

REACTIONS (1)
  - Megacolon [Recovering/Resolving]

NARRATIVE: CASE EVENT DATE: 202008
